FAERS Safety Report 8317870-7 (Version None)
Quarter: 2012Q2

REPORT INFORMATION
  Report Type: 
  Country: None (occurrence: None)
  Receive Date: 20120427
  Receipt Date: 20120418
  Transmission Date: 20120825
  Serious: Yes (Other)
  Sender: FDA-Public Use
  Company Number: CN-JNJFOC-20120408792

PATIENT
  Age: 50 Year
  Sex: Female

DRUGS (1)
  1. SPORANOX [Suspect]
     Indication: ONYCHOMYCOSIS
     Route: 048
     Dates: start: 20120103, end: 20120318

REACTIONS (7)
  - MUSCULOSKELETAL CHEST PAIN [None]
  - PALPITATIONS [None]
  - DECREASED APPETITE [None]
  - RENAL PAIN [None]
  - CHEST PAIN [None]
  - ABDOMINAL DISTENSION [None]
  - INTENTIONAL DRUG MISUSE [None]
